FAERS Safety Report 8459189-X (Version None)
Quarter: 2012Q2

REPORT INFORMATION
  Report Type: 
  Country: None (occurrence: None)
  Receive Date: 20120622
  Receipt Date: 20120612
  Transmission Date: 20120825
  Serious: Yes (Other)
  Sender: FDA-Public Use
  Company Number: JP-VERTEX PHARMACEUTICALS INC.-AE-2012-008914

PATIENT
  Age: 60 Year
  Sex: Male

DRUGS (1)
  1. INCIVEK [Suspect]
     Route: 048
     Dates: start: 20120528, end: 20120601

REACTIONS (1)
  - RENAL IMPAIRMENT [None]
